FAERS Safety Report 25314486 (Version 6)
Quarter: 2025Q3

REPORT INFORMATION
  Report Type: Report from Study
  Country: GB (occurrence: GB)
  Receive Date: 20250514
  Receipt Date: 20250908
  Transmission Date: 20251020
  Serious: Yes (Hospitalization, Other)
  Sender: UCB
  Company Number: GB-UCBSA-2024062815

PATIENT
  Sex: Female
  Weight: 56.6 kg

DRUGS (18)
  1. BIMEKIZUMAB [Suspect]
     Active Substance: BIMEKIZUMAB
     Indication: Psoriatic arthropathy
     Dosage: 160 MILLIGRAM, MONTHLY (QM)
     Route: 058
     Dates: start: 20241017
  2. BIMEKIZUMAB [Suspect]
     Active Substance: BIMEKIZUMAB
     Dosage: 160 MILLIGRAM, MONTHLY (QM)
     Route: 058
     Dates: start: 20250328
  3. BIMEKIZUMAB [Suspect]
     Active Substance: BIMEKIZUMAB
     Dosage: 160 MILLIGRAM, MONTHLY (QM)
     Route: 058
     Dates: start: 20250428, end: 202505
  4. PREDNISOLONE [Concomitant]
     Active Substance: PREDNISOLONE
     Indication: Psoriatic arthropathy
     Dates: start: 20241119
  5. PREDNISOLONE [Concomitant]
     Active Substance: PREDNISOLONE
  6. AMLODIPINE [Concomitant]
     Active Substance: AMLODIPINE BESYLATE
     Indication: Hypertension
     Dosage: 5 MILLIGRAM, ONCE DAILY (QD)
     Dates: start: 2009
  7. LANSOPRAZOLE [Concomitant]
     Active Substance: LANSOPRAZOLE
     Indication: Prophylaxis
     Dosage: 15 MILLIGRAM, ONCE DAILY (QD)
     Dates: start: 2022
  8. NOVORAPID [Concomitant]
     Active Substance: INSULIN ASPART
     Indication: Diabetes mellitus
     Dates: start: 2013
  9. MIRTAZAPINE [Concomitant]
     Active Substance: MIRTAZAPINE
     Indication: Depression
     Dosage: 30 MILLIGRAM, ONCE DAILY (QD)
     Dates: start: 20150812
  10. ATORVASTATIN [Concomitant]
     Active Substance: ATORVASTATIN
     Indication: Hypercholesterolaemia
     Dosage: 40 MILLIGRAM, ONCE DAILY (QD)
     Dates: start: 2017
  11. ASACOL [Concomitant]
     Active Substance: MESALAMINE
     Indication: Diverticulum intestinal
     Dosage: 800 MILLIGRAM, 2X/DAY (BID)
     Dates: start: 2011
  12. CLOPIDOGREL [Concomitant]
     Active Substance: CLOPIDOGREL BISULFATE
     Indication: Transient ischaemic attack
     Dosage: 75 MILLIGRAM, ONCE DAILY (QD)
     Dates: start: 2021
  13. CEPHALEXIN [Concomitant]
     Active Substance: CEPHALEXIN
     Indication: Hypogammaglobulinaemia
     Dosage: 250 MILLIGRAM, ONCE DAILY (QD)
     Dates: start: 2012
  14. ALBUTEROL [Concomitant]
     Active Substance: ALBUTEROL
     Indication: Asthma
     Dates: start: 2006
  15. CALCIUM\CHOLECALCIFEROL [Concomitant]
     Active Substance: CALCIUM\CHOLECALCIFEROL
     Indication: Prophylaxis
     Dates: start: 2007
  16. TRAMADOL [Concomitant]
     Active Substance: TRAMADOL
     Indication: Psoriatic arthropathy
     Dosage: 50 MILLIGRAM, 2X/DAY (BID)
     Dates: start: 2020
  17. NEFOPAM [Concomitant]
     Active Substance: NEFOPAM
     Indication: Psoriatic arthropathy
     Dosage: 30 MILLIGRAM, 2X/DAY (BID)
     Dates: start: 2020
  18. PREGABALIN [Concomitant]
     Active Substance: PREGABALIN
     Indication: Psoriatic arthropathy
     Dosage: 150 MILLIGRAM, 3X/DAY (TID)
     Dates: start: 2023

REACTIONS (7)
  - Diabetic ketoacidosis [Recovered/Resolved]
  - Psoriatic arthropathy [Not Recovered/Not Resolved]
  - Oesophageal candidiasis [Recovering/Resolving]
  - Arthralgia [Recovering/Resolving]
  - Tooth extraction [Recovered/Resolved]
  - Urinary tract infection [Recovered/Resolved]
  - Therapy interrupted [Unknown]

NARRATIVE: CASE EVENT DATE: 20241114
